FAERS Safety Report 25107558 (Version 2)
Quarter: 2025Q1

REPORT INFORMATION
  Report Type: Report from Study
  Country: US (occurrence: US)
  Receive Date: 20250321
  Receipt Date: 20250324
  Transmission Date: 20250409
  Serious: Yes (Other)
  Sender: ABBVIE
  Company Number: US-ABBVIE-5803557

PATIENT
  Age: 67 Year
  Sex: Female

DRUGS (1)
  1. SKYRIZI [Suspect]
     Active Substance: RISANKIZUMAB-RZAA
     Indication: Psoriasis
     Route: 058
     Dates: start: 20230814

REACTIONS (6)
  - Perforation bile duct [Not Recovered/Not Resolved]
  - Biliary colic [Not Recovered/Not Resolved]
  - Injection site pain [Not Recovered/Not Resolved]
  - Epicondylitis [Recovering/Resolving]
  - Injection site discharge [Not Recovered/Not Resolved]
  - Psoriasis [Recovered/Resolved]

NARRATIVE: CASE EVENT DATE: 20250101
